FAERS Safety Report 21465690 (Version 4)
Quarter: 2025Q1

REPORT INFORMATION
  Report Type: Spontaneous
  Country: US (occurrence: US)
  Receive Date: 20221017
  Receipt Date: 20250324
  Transmission Date: 20250409
  Serious: No
  Sender: SANOFI AVENTIS
  Company Number: US-SA-SAC20221017000162

PATIENT
  Age: 63 Year
  Sex: Male

DRUGS (1)
  1. DUPIXENT [Suspect]
     Active Substance: DUPILUMAB
     Indication: Dermatitis atopic
     Dosage: 300 MG, QOW
     Route: 058

REACTIONS (7)
  - Constipation [Unknown]
  - Ingrowing nail [Unknown]
  - Peripheral swelling [Unknown]
  - Nail infection [Unknown]
  - Urticaria [Unknown]
  - Dry eye [Unknown]
  - Rash [Unknown]

NARRATIVE: CASE EVENT DATE: 20221013
